FAERS Safety Report 4600353-5 (Version None)
Quarter: 2005Q1

REPORT INFORMATION
  Report Type: 
  Country: None (occurrence: None)
  Receive Date: 20050303
  Receipt Date: 20050214
  Transmission Date: 20050727
  Serious: Yes (Hospitalization)
  Sender: FDA-Public Use
  Company Number: USA031050367

PATIENT
  Age: 78 Year
  Sex: Female
  Weight: 48 kg

DRUGS (3)
  1. FORTEO [Suspect]
     Indication: OSTEOPOROSIS
     Dates: start: 20030701
  2. PREDNISONE [Concomitant]
  3. OXYGEN [Concomitant]

REACTIONS (10)
  - CHRONIC OBSTRUCTIVE AIRWAYS DISEASE EXACERBATED [None]
  - FALL [None]
  - HAEMORRHAGE [None]
  - LACERATION [None]
  - LOWER LIMB FRACTURE [None]
  - NASOPHARYNGITIS [None]
  - PAIN [None]
  - PHARMACEUTICAL PRODUCT COMPLAINT [None]
  - SPINAL FRACTURE [None]
  - THORACIC VERTEBRAL FRACTURE [None]
